FAERS Safety Report 24028749 (Version 1)
Quarter: 2024Q2

REPORT INFORMATION
  Report Type: Spontaneous
  Country: US (occurrence: None)
  Receive Date: 20240627
  Receipt Date: 20240627
  Transmission Date: 20240716
  Serious: Yes (Other)
  Sender: FDA-Public Use
  Company Number: None

PATIENT
  Age: 59 Year
  Sex: Female
  Weight: 59.85 kg

DRUGS (1)
  1. CARAFATE [Suspect]
     Active Substance: SUCRALFATE
     Indication: Ulcer
     Dates: start: 20240626, end: 20240627

REACTIONS (4)
  - Pruritus [None]
  - Vision blurred [None]
  - Paraesthesia [None]
  - Paraesthesia [None]

NARRATIVE: CASE EVENT DATE: 20240626
